FAERS Safety Report 21622856 (Version 1)
Quarter: 2022Q4

REPORT INFORMATION
  Report Type: Spontaneous
  Country: CN (occurrence: CN)
  Receive Date: 20221121
  Receipt Date: 20221121
  Transmission Date: 20230113
  Serious: Yes (Death, Hospitalization, Other)
  Sender: FDA-Public Use
  Company Number: CN-GLAXOSMITHKLINE-CN2022GSK164351

PATIENT

DRUGS (3)
  1. LAMOTRIGINE [Interacting]
     Active Substance: LAMOTRIGINE
     Indication: Partial seizures with secondary generalisation
     Dosage: 25 MG, BID
  2. VALPROATE SODIUM [Interacting]
     Active Substance: VALPROATE SODIUM
     Indication: Partial seizures with secondary generalisation
     Dosage: 0.4 G, BID
  3. CLONAZEPAM [Interacting]
     Active Substance: CLONAZEPAM
     Indication: Partial seizures with secondary generalisation
     Dosage: 8 MG, QD

REACTIONS (16)
  - Acute hepatic failure [Fatal]
  - Drug-induced liver injury [Fatal]
  - Hepatic encephalopathy [Fatal]
  - Pyrexia [Unknown]
  - Rash [Unknown]
  - Yellow skin [Unknown]
  - Mental impairment [Unknown]
  - Lethargy [Unknown]
  - Rash erythematous [Unknown]
  - Ocular icterus [Unknown]
  - Depressed level of consciousness [Unknown]
  - Jaundice [Unknown]
  - Hepatic function abnormal [Unknown]
  - Gallbladder enlargement [Unknown]
  - Drug interaction [Unknown]
  - Overdose [Unknown]
